FAERS Safety Report 26158190 (Version 1)
Quarter: 2025Q4

REPORT INFORMATION
  Report Type: Spontaneous
  Country: TR (occurrence: TR)
  Receive Date: 20251215
  Receipt Date: 20251215
  Transmission Date: 20260118
  Serious: Yes (Other)
  Sender: INCYTE
  Company Number: TR-002147023-NVSC2025TR190169

PATIENT

DRUGS (1)
  1. RUXOLITINIB [Suspect]
     Active Substance: RUXOLITINIB
     Indication: Myelofibrosis
     Dosage: UNK (DOSE: 2X1)
     Route: 065

REACTIONS (1)
  - Peripheral arterial occlusive disease [Unknown]
